FAERS Safety Report 14890108 (Version 4)
Quarter: 2020Q2

REPORT INFORMATION
  Report Type: Spontaneous
  Country: FR (occurrence: FR)
  Receive Date: 20180514
  Receipt Date: 20200413
  Transmission Date: 20200713
  Serious: Yes (Hospitalization, Other)
  Sender: FDA-Public Use
  Company Number: FR-AUROBINDO-AUR-APL-2018-025372

PATIENT
  Age: 88 Year
  Sex: Female

DRUGS (5)
  1. CLOPIDOGREL [Suspect]
     Active Substance: CLOPIDOGREL BISULFATE
     Indication: PRODUCT USED FOR UNKNOWN INDICATION
     Dosage: 75 MG, DAILY
     Route: 048
     Dates: start: 20170707, end: 20170828
  2. APIXABAN [Suspect]
     Active Substance: APIXABAN
     Indication: PRODUCT USED FOR UNKNOWN INDICATION
     Dosage: UNK
     Route: 065
  3. WARFARIN SODIUM. [Suspect]
     Active Substance: WARFARIN SODIUM
     Dosage: 2 MILLIGRAM
     Route: 048
     Dates: start: 20170708, end: 20170828
  4. CLOPIDOGREL [Suspect]
     Active Substance: CLOPIDOGREL BISULFATE
     Dosage: 75 MG, DAILY
     Route: 048
     Dates: start: 20170609, end: 20170828
  5. WARFARIN SODIUM. [Suspect]
     Active Substance: WARFARIN SODIUM
     Indication: PRODUCT USED FOR UNKNOWN INDICATION
     Dosage: 2 MILLIGRAM, ONCE A DAY
     Route: 048
     Dates: start: 20170706, end: 20170828

REACTIONS (2)
  - Cardiac tamponade [Recovered/Resolved]
  - Atrioventricular block complete [Recovered/Resolved]

NARRATIVE: CASE EVENT DATE: 20170828
